FAERS Safety Report 4883857-X (Version None)
Quarter: 2006Q1

REPORT INFORMATION
  Report Type: 
  Country: None (occurrence: None)
  Receive Date: 20060112
  Receipt Date: 20060102
  Transmission Date: 20060701
  Serious: Yes (Death, Hospitalization)
  Sender: FDA-Public Use
  Company Number: 200514461GDS

PATIENT
  Age: 6 Month

DRUGS (1)
  1. ASPIRIN [Suspect]

REACTIONS (13)
  - BLOOD LACTATE DEHYDROGENASE INCREASED [None]
  - CSF GLUCOSE [None]
  - CSF LYMPHOCYTE COUNT INCREASED [None]
  - CSF PROTEIN [None]
  - ENCEPHALOPATHY [None]
  - GRAND MAL CONVULSION [None]
  - HAEMATOCRIT ABNORMAL [None]
  - HAEMOGLOBIN ABNORMAL [None]
  - NECROSIS [None]
  - PLATELET COUNT INCREASED [None]
  - RED BLOOD CELL COUNT DECREASED [None]
  - RESPIRATORY ARREST [None]
  - XANTHOCHROMIA [None]
